FAERS Safety Report 8794686 (Version 1)
Quarter: 2012Q4

REPORT INFORMATION
  Report Type: Report from Study
  Country: JP (occurrence: JP)
  Receive Date: 20120917
  Receipt Date: 20120917
  Transmission Date: 20130627
  Serious: Yes (Other)
  Sender: FDA-Public Use
  Company Number: JP-VERTEX PHARMACEUTICAL INC.-AE-2012-011827

PATIENT
  Age: 53 Year
  Sex: Male

DRUGS (6)
  1. VX-950 [Suspect]
     Indication: HEPATITIS C
     Dosage: 2250 mg, qd
     Route: 048
     Dates: start: 20120605, end: 20120827
  2. RIBAVIRIN [Suspect]
     Indication: HEPATITIS C
     Route: 048
  3. PEGINTRON                          /01543001/ [Suspect]
     Indication: HEPATITIS C
     Dosage: 1.4 ?g/kg, UNK
     Route: 058
     Dates: start: 20120605, end: 20120626
  4. PEGINTRON                          /01543001/ [Suspect]
     Dosage: 0.7 ?g/kg, UNK
     Route: 058
     Dates: start: 20120703, end: 20120703
  5. PEGINTRON                          /01543001/ [Suspect]
     Dosage: 1.4 ?g/kg, UNK
     Route: 058
     Dates: start: 20120710
  6. URSO                               /00465701/ [Concomitant]
     Dosage: 600 mg, qd
     Route: 048

REACTIONS (1)
  - Renal impairment [Not Recovered/Not Resolved]
